FAERS Safety Report 11053308 (Version 2)
Quarter: 2015Q2

REPORT INFORMATION
  Report Type: Spontaneous
  Country: IT (occurrence: IT)
  Receive Date: 20150421
  Receipt Date: 20150518
  Transmission Date: 20150821
  Serious: Yes (Hospitalization)
  Sender: FDA-Public Use
  Company Number: IT-GE HEALTHCARE MEDICAL DIAGNOSTICS-VISP-PR-1504S-0114

PATIENT
  Sex: Male

DRUGS (8)
  1. VISIPAQUE [Suspect]
     Active Substance: IODIXANOL
     Indication: DIAGNOSTIC PROCEDURE
  2. FUROSEMIDE. [Concomitant]
     Active Substance: FUROSEMIDE
  3. VISIPAQUE [Suspect]
     Active Substance: IODIXANOL
     Indication: CARDIAC OPERATION
     Route: 042
     Dates: start: 20140701, end: 20140701
  4. AMIODARONE [Concomitant]
     Active Substance: AMIODARONE
  5. ENALAPRIL [Concomitant]
     Active Substance: ENALAPRIL
  6. SINTROM [Concomitant]
     Active Substance: ACENOCOUMAROL
  7. LUVION [Concomitant]
     Active Substance: CANRENONE
  8. PARIET [Concomitant]
     Active Substance: RABEPRAZOLE SODIUM

REACTIONS (3)
  - Dermatitis exfoliative [Recovered/Resolved with Sequelae]
  - Eczema [Unknown]
  - Chronic actinic dermatitis [Recovered/Resolved with Sequelae]

NARRATIVE: CASE EVENT DATE: 201407
